FAERS Safety Report 24642846 (Version 1)
Quarter: 2024Q4

REPORT INFORMATION
  Report Type: Spontaneous
  Country: GB (occurrence: GB)
  Receive Date: 20241120
  Receipt Date: 20241120
  Transmission Date: 20250114
  Serious: Yes (Other)
  Sender: PFIZER
  Company Number: None

PATIENT
  Age: 34 Year
  Sex: Female
  Weight: 102 kg

DRUGS (2)
  1. PROVERA [Suspect]
     Active Substance: MEDROXYPROGESTERONE ACETATE
     Indication: Polycystic ovarian syndrome
     Dosage: 20 MG (2X10MG), 3X/DAY
     Dates: start: 20241116
  2. IRON [Concomitant]
     Active Substance: IRON
     Indication: Oligomenorrhoea
     Dates: start: 20241101

REACTIONS (5)
  - Palpitations [Recovering/Resolving]
  - Nausea [Recovering/Resolving]
  - Diarrhoea [Recovering/Resolving]
  - Medication error [Unknown]
  - Off label use [Unknown]

NARRATIVE: CASE EVENT DATE: 20241116
